FAERS Safety Report 4375185-6 (Version None)
Quarter: 2004Q2

REPORT INFORMATION
  Report Type: 
  Country: None (occurrence: None)
  Receive Date: 20040607
  Receipt Date: 20030408
  Transmission Date: 20050107
  Serious: Yes (Other)
  Sender: FDA-Public Use
  Company Number: 335622

PATIENT

DRUGS (3)
  1. ACCUTANE [Suspect]
     Dosage: ORAL
     Route: 048
     Dates: end: 20030115
  2. ISOTRETINOIN [Suspect]
     Dosage: ORAL
     Route: 048
     Dates: start: 20030115, end: 20030118
  3. ORAL CONTRACEPTIVES (CONTRACEPTIVES) [Concomitant]

REACTIONS (1)
  - ABORTION INDUCED [None]
